FAERS Safety Report 26107081 (Version 1)
Quarter: 2025Q4

REPORT INFORMATION
  Report Type: Spontaneous
  Country: EU (occurrence: EU)
  Receive Date: 20251201
  Receipt Date: 20251201
  Transmission Date: 20260117
  Serious: Yes (Other)
  Sender: ACCORD
  Company Number: None

PATIENT
  Age: 0 Hour
  Sex: Male
  Weight: 2.54 kg

DRUGS (6)
  1. QUETIAPINE [Suspect]
     Active Substance: QUETIAPINE
     Dosage: 300 TO 400 MG/DAY
     Dates: start: 20240628, end: 20250222
  2. SERTRALINE [Suspect]
     Active Substance: SERTRALINE HYDROCHLORIDE
     Dosage: 150 TO 250 MG/DAY
     Dates: start: 20240628, end: 20250222
  3. ATARAX [Suspect]
     Active Substance: HYDROXYZINE HYDROCHLORIDE
     Dosage: 25 MG/DAY, 25 MG, SCORED FILM-COATED TABLET
     Dates: start: 2025, end: 20250222
  4. MELATONIN [Concomitant]
     Active Substance: MELATONIN
     Dosage: 8 MG/DAY
     Dates: end: 202412
  5. URSODIOL [Concomitant]
     Active Substance: URSODIOL
     Dosage: STRENGTH: 500 MG
     Dates: start: 2025, end: 20250222
  6. CALCIUM PHOSPHATE, DIBASIC, ANHYDROUS\MAGNESIUM GLYCEROPHOSPHATE\PHOSP [Concomitant]
     Active Substance: CALCIUM PHOSPHATE, DIBASIC, ANHYDROUS\MAGNESIUM GLYCEROPHOSPHATE\PHOSPHORIC ACID\SODIUM PHOSPHATE, D
     Dosage: 30 GTTS/DAY, ORAL SOLUTION IN DROPS
     Dates: start: 20240628, end: 20250222

REACTIONS (6)
  - Pyelocaliectasis [Not Recovered/Not Resolved]
  - Scaphocephaly [Not Recovered/Not Resolved]
  - Neonatal hypoxia [Recovered/Resolved]
  - Hypertonia neonatal [Recovered/Resolved]
  - Tremor neonatal [Recovered/Resolved]
  - Foetal exposure during pregnancy [Recovered/Resolved]

NARRATIVE: CASE EVENT DATE: 20250222
